FAERS Safety Report 23695471 (Version 1)
Quarter: 2024Q2

REPORT INFORMATION
  Report Type: Report from Study
  Country: US (occurrence: US)
  Receive Date: 20240402
  Receipt Date: 20240402
  Transmission Date: 20240716
  Serious: Yes (Death)
  Sender: FDA-Public Use
  Company Number: US-AZURITY PHARMACEUTICALS, INC.-US-2024AZR000332

PATIENT
  Sex: Male

DRUGS (4)
  1. BENDAMUSTINE HYDROCHLORIDE [Suspect]
     Active Substance: BENDAMUSTINE HYDROCHLORIDE
     Indication: Chronic lymphocytic leukaemia recurrent
     Dosage: UNK
     Route: 065
  2. PIRTOBRUTINIB [Suspect]
     Active Substance: PIRTOBRUTINIB
     Indication: Chronic lymphocytic leukaemia recurrent
     Dosage: UNK
     Route: 065
  3. IDELALISIB [Concomitant]
     Active Substance: IDELALISIB
     Indication: Chronic lymphocytic leukaemia recurrent
     Dosage: UNK
     Route: 065
  4. ACALABRUTINIB [Concomitant]
     Active Substance: ACALABRUTINIB
     Indication: Chronic lymphocytic leukaemia recurrent
     Dosage: UNK
     Route: 065

REACTIONS (1)
  - Disease complication [Fatal]
